FAERS Safety Report 4850166-4 (Version None)
Quarter: 2005Q4

REPORT INFORMATION
  Report Type: 
  Country: None (occurrence: None)
  Receive Date: 20051123
  Receipt Date: 20050701
  Transmission Date: 20060501
  Serious: Yes (Other)
  Sender: FDA-Public Use
  Company Number: 2005086814

PATIENT
  Age: 65 Year
  Sex: Female
  Weight: 136.0791 kg

DRUGS (4)
  1. LIPITOR [Suspect]
     Indication: BLOOD CHOLESTEROL
     Dosage: 10 MG (10 MG, 1 IN 1 D)
     Dates: end: 20050101
  2. CRESTOR [Suspect]
     Indication: BLOOD CHOLESTEROL
     Dosage: (5 MG)
     Dates: start: 20050523, end: 20050525
  3. ALL OTHER THERAPEUTIC PRODUCTS [Concomitant]
  4. ANTIHYPERTENSIVES [Concomitant]

REACTIONS (10)
  - ARTHRALGIA [None]
  - BACK PAIN [None]
  - BLOOD URINE [None]
  - DIFFICULTY IN WALKING [None]
  - DRUG INEFFECTIVE [None]
  - INSOMNIA [None]
  - MUSCLE SPASMS [None]
  - MYALGIA [None]
  - URINARY INCONTINENCE [None]
  - YELLOW SKIN [None]
